FAERS Safety Report 19889184 (Version 1)
Quarter: 2021Q3

REPORT INFORMATION
  Report Type: Spontaneous
  Country: GB (occurrence: GB)
  Receive Date: 20210927
  Receipt Date: 20210927
  Transmission Date: 20211014
  Serious: Yes (Hospitalization, Other)
  Sender: FDA-Public Use
  Company Number: GB-BAYER-2021-213537

PATIENT
  Age: 41 Year
  Sex: Female
  Weight: 58 kg

DRUGS (3)
  1. ASTRAZENECA COVID?19 VACCINE [Suspect]
     Active Substance: AZD-1222
     Indication: COVID-19 IMMUNISATION
     Dosage: UNK
     Dates: start: 20210225, end: 20210225
  2. MIRENA [Suspect]
     Active Substance: LEVONORGESTREL
     Dosage: 20 ?G, CONT
     Route: 015
  3. ASTRAZENECA COVID?19 VACCINE [Suspect]
     Active Substance: AZD-1222
     Indication: COVID-19 IMMUNISATION
     Dosage: UNK
     Dates: start: 20210514, end: 20210514

REACTIONS (7)
  - Ovulation pain [Recovered/Resolved]
  - Ovulation pain [Recovered/Resolved]
  - Ovulation pain [Recovered/Resolved]
  - Ovulation pain [Recovered/Resolved]
  - Ovulation pain [Recovered/Resolved]
  - Adnexa uteri pain [Recovered/Resolved]
  - Ovulation pain [Recovered/Resolved]

NARRATIVE: CASE EVENT DATE: 20210322
